FAERS Safety Report 10059892 (Version 1)
Quarter: 2014Q2

REPORT INFORMATION
  Report Type: Spontaneous
  Country: US (occurrence: US)
  Receive Date: 20140404
  Receipt Date: 20140404
  Transmission Date: 20141212
  Serious: Yes (Other)
  Sender: FDA-Public Use
  Company Number: US-GLAXOSMITHKLINE-A1067299A

PATIENT
  Age: 80 Year
  Sex: Male

DRUGS (5)
  1. AVODART [Suspect]
     Indication: URINARY RETENTION
     Dosage: 1CAP PER DAY
     Route: 048
     Dates: start: 201401
  2. COZAAR [Concomitant]
  3. TAMSULOSIN [Concomitant]
  4. TRICOR [Concomitant]
  5. CRESTOR [Concomitant]

REACTIONS (6)
  - Cerebrovascular accident [Not Recovered/Not Resolved]
  - Vision blurred [Not Recovered/Not Resolved]
  - Blindness [Not Recovered/Not Resolved]
  - Dizziness [Recovering/Resolving]
  - Confusional state [Recovering/Resolving]
  - Feeling abnormal [Not Recovered/Not Resolved]
